FAERS Safety Report 9221723 (Version 1)
Quarter: 2013Q1

REPORT INFORMATION
  Report Type: Spontaneous
  Country: US (occurrence: US)
  Receive Date: 20120907
  Receipt Date: 20120907
  Transmission Date: 20140127
  Serious: Yes (Other)
  Sender: FDA-Public Use
  Company Number: TH-2011-0131

PATIENT
  Age: 55 Year
  Sex: Female

DRUGS (2)
  1. EGRIFTA [Suspect]
     Indication: LIPODYSTROPHY ACQUIRED
     Dates: start: 2011
  2. LEXAPRO [Concomitant]
     Dates: start: 2011

REACTIONS (3)
  - Blood pressure increased [None]
  - Sinus congestion [None]
  - Respiratory tract congestion [None]
